FAERS Safety Report 18473342 (Version 1)
Quarter: 2020Q4

REPORT INFORMATION
  Report Type: Spontaneous
  Country: US (occurrence: US)
  Receive Date: 20201104
  Receipt Date: 20201104
  Transmission Date: 20210114
  Serious: Yes (Other)
  Sender: FDA-Public Use
  Company Number: None

PATIENT
  Age: 65 Year
  Sex: Male
  Weight: 86 kg

DRUGS (1)
  1. CHLORHEXIDINE GLUCONATE ORAL RINSE 0.12 % [Suspect]
     Active Substance: CHLORHEXIDINE GLUCONATE
     Indication: PRODUCT USED FOR UNKNOWN INDICATION
     Route: 002
     Dates: start: 20200919, end: 20201023

REACTIONS (4)
  - Burkholderia test positive [None]
  - Sputum culture positive [None]
  - Product contamination microbial [None]
  - Recalled product administered [None]

NARRATIVE: CASE EVENT DATE: 20201006
